FAERS Safety Report 8165843-X (Version None)
Quarter: 2012Q1

REPORT INFORMATION
  Report Type: 
  Country: None (occurrence: None)
  Receive Date: 20120223
  Receipt Date: 20120223
  Transmission Date: 20120608
  Serious: Yes (Hospitalization)
  Sender: FDA-Public Use
  Company Number: None

PATIENT
  Age: 53 Year
  Sex: Male
  Weight: 78 kg

DRUGS (1)
  1. MORPHINE [Suspect]
     Indication: PAIN
     Dates: start: 20110726, end: 20110730

REACTIONS (3)
  - SEDATION [None]
  - MENTAL STATUS CHANGES [None]
  - DELIRIUM [None]
